FAERS Safety Report 4503955-X (Version None)
Quarter: 2004Q3

REPORT INFORMATION
  Report Type: 
  Country: None (occurrence: None)
  Receive Date: 20040927
  Receipt Date: 20040720
  Transmission Date: 20050211
  Serious: No
  Sender: FDA-Public Use
  Company Number: USA040773161

PATIENT
  Age: 11 Year
  Sex: Male
  Weight: 31 kg

DRUGS (3)
  1. STRATTERA [Suspect]
     Indication: ATTENTION DEFICIT/HYPERACTIVITY DISORDER
     Dosage: 40 MG DAY
     Dates: start: 20040701
  2. CALCIUM [Concomitant]
  3. VITAMIN [Concomitant]

REACTIONS (5)
  - DECREASED APPETITE [None]
  - DRUG INEFFECTIVE [None]
  - HEADACHE [None]
  - INITIAL INSOMNIA [None]
  - WEIGHT DECREASED [None]
